FAERS Safety Report 4846948-5 (Version None)
Quarter: 2005Q4

REPORT INFORMATION
  Report Type: 
  Country: None (occurrence: None)
  Receive Date: 20051202
  Receipt Date: 20051122
  Transmission Date: 20060501
  Serious: Yes (Other)
  Sender: FDA-Public Use
  Company Number: HQWYE696523NOV05

PATIENT
  Age: 61 Year
  Sex: Male

DRUGS (18)
  1. RAPAMUNE [Suspect]
     Indication: PROPHYLAXIS AGAINST TRANSPLANT REJECTION
     Dates: start: 20030530, end: 20050912
  2. OMEPRAZOLE [Concomitant]
  3. LASIX [Concomitant]
  4. POTASSIUM CHLORIDE [Concomitant]
  5. ALLOPURINOL [Concomitant]
  6. CASODEX [Concomitant]
  7. MYCOSTATIN [Concomitant]
  8. EOSINE (EOSINE) [Concomitant]
  9. TRAMADOL HCL [Concomitant]
  10. AUGMENTIN (AMOXICILLIN SODIUM/CALVULANATE POTASSIUM) [Concomitant]
  11. SODIUM BICARBONATE IN PLASTIC CONTAINER [Concomitant]
  12. ATENOLOL [Concomitant]
  13. RAMIPRIL [Concomitant]
  14. CARDURA [Concomitant]
  15. ATORVASTATIN CALCIUM [Concomitant]
  16. MYCOPHENOLATE MOFETIL (MYCOPHENOLATE MOFETIL) [Concomitant]
  17. METHYLPREDNISOLONE [Concomitant]
  18. ALBUMIN (HUMAN) [Concomitant]

REACTIONS (1)
  - LARYNGEAL CANCER [None]
